FAERS Safety Report 10736454 (Version 1)
Quarter: 2015Q1

REPORT INFORMATION
  Report Type: Spontaneous
  Country: DK (occurrence: DK)
  Receive Date: 20150126
  Receipt Date: 20150126
  Transmission Date: 20150721
  Serious: Yes (Death)
  Sender: FDA-Public Use
  Company Number: DK-ASTRAZENECA-2015SE05775

PATIENT
  Age: 80 Year
  Sex: Female

DRUGS (7)
  1. TRIOBE [Concomitant]
     Indication: SUPPLEMENTATION THERAPY
     Dates: start: 2013
  2. MEROPENEM. [Suspect]
     Active Substance: MEROPENEM
     Indication: SEPSIS
     Route: 042
     Dates: start: 20140717, end: 20140717
  3. NITRAZEPAM ^DAK^ [Concomitant]
     Indication: INSOMNIA
     Dates: start: 2011
  4. PERSANTIN RETARD [Concomitant]
     Active Substance: DIPYRIDAMOLE
     Indication: THROMBOSIS PROPHYLAXIS
     Dates: start: 2010
  5. LYRICA [Concomitant]
     Active Substance: PREGABALIN
     Indication: EPILEPSY
  6. ALPROX [Concomitant]
     Active Substance: ALPRAZOLAM
     Indication: RESTLESSNESS
  7. KEPPRA [Concomitant]
     Active Substance: LEVETIRACETAM
     Indication: EPILEPSY

REACTIONS (9)
  - Cyanosis [Fatal]
  - Pulmonary embolism [Fatal]
  - Hyperkalaemia [Fatal]
  - Hypotension [Fatal]
  - Arrhythmia [Fatal]
  - Dyspnoea [Fatal]
  - Angioedema [Fatal]
  - Cardiac arrest [Fatal]
  - Anaphylactic shock [Fatal]

NARRATIVE: CASE EVENT DATE: 20140717
